FAERS Safety Report 6543238-X (Version None)
Quarter: 2010Q1

REPORT INFORMATION
  Report Type: 
  Country: None (occurrence: None)
  Receive Date: 20100120
  Receipt Date: 20100113
  Transmission Date: 20100710
  Serious: Yes (Other)
  Sender: FDA-Public Use
  Company Number: US-JNJCH-2010001092

PATIENT
  Weight: 18.1 kg

DRUGS (1)
  1. CHILDREN'S ZYRTEC ALLERGY [Suspect]
     Indication: HYPERSENSITIVITY
     Dosage: TEXT:1 TEASPOONFUL DAILY
     Route: 048

REACTIONS (4)
  - COUGH [None]
  - OVERDOSE [None]
  - WHEEZING [None]
  - WRONG DRUG ADMINISTERED [None]
